FAERS Safety Report 17567212 (Version 1)
Quarter: 2020Q1

REPORT INFORMATION
  Report Type: Spontaneous
  Country: GB (occurrence: GB)
  Receive Date: 20200320
  Receipt Date: 20200320
  Transmission Date: 20200409
  Serious: Yes (Other)
  Sender: FDA-Public Use
  Company Number: GB-SA-2020SA069457

PATIENT
  Age: 60 Year
  Sex: Female
  Weight: 79 kg

DRUGS (15)
  1. EZETIMIBE. [Concomitant]
     Active Substance: EZETIMIBE
     Dosage: AT NIGHT
     Dates: start: 20200218
  2. FLUCLOXACILLIN [Concomitant]
     Active Substance: FLUCLOXACILLIN
     Route: 065
     Dates: start: 20191206, end: 20191213
  3. CODEINE PHOSPHATE [Concomitant]
     Active Substance: CODEINE PHOSPHATE
     Dosage: ONE OR TWO TABLETS UP TO FOUR TIMES A DAY AS RE...
     Route: 065
     Dates: start: 20161101
  4. CETIRIZINE [Concomitant]
     Active Substance: CETIRIZINE HYDROCHLORIDE
     Route: 065
     Dates: start: 20161101
  5. VENTOLINE [SALBUTAMOL SULFATE] [Concomitant]
     Active Substance: ALBUTEROL SULFATE
     Dosage: INHALE
     Route: 055
     Dates: start: 20171222
  6. DUORESP SPIROMAX [Concomitant]
     Active Substance: BUDESONIDE\FORMOTEROL
     Dosage: UNK UNK, BID
     Route: 055
     Dates: start: 20170130
  7. MONTELUKAST [Concomitant]
     Active Substance: MONTELUKAST SODIUM
     Dosage: AT NIGHT
     Route: 065
     Dates: start: 20161101
  8. DICLOMAX [DICLOFENAC SODIUM] [Concomitant]
     Route: 065
     Dates: start: 20161101
  9. HUMALOG [Concomitant]
     Active Substance: INSULIN LISPRO
     Dosage: UNK UNK, TID
     Route: 065
     Dates: start: 20170817
  10. DILTIAZEM HYDROCHLORIDE. [Concomitant]
     Active Substance: DILTIAZEM HYDROCHLORIDE
     Route: 065
     Dates: start: 20161101
  11. AVAMYS [Concomitant]
     Active Substance: FLUTICASONE FUROATE
     Route: 065
     Dates: start: 20161101
  12. LANTUS [Concomitant]
     Active Substance: INSULIN GLARGINE
     Dosage: BETWEEN 40-50 UNITS AT NIGHT
     Route: 065
     Dates: start: 20161101, end: 20200124
  13. TOUJEO [Suspect]
     Active Substance: INSULIN GLARGINE
     Dosage: 300UNITS/ML, 1.5ML. USE AS DIRECTED
     Dates: start: 20200124, end: 20200302
  14. RANITIDINE. [Concomitant]
     Active Substance: RANITIDINE
     Route: 065
     Dates: start: 20161101
  15. RAMIPRIL. [Concomitant]
     Active Substance: RAMIPRIL
     Route: 065
     Dates: start: 20161101

REACTIONS (4)
  - Wheezing [Recovered/Resolved]
  - Pruritus [Unknown]
  - Rash [Recovered/Resolved]
  - Dizziness [Unknown]

NARRATIVE: CASE EVENT DATE: 20200124
